FAERS Safety Report 7961045-8 (Version None)
Quarter: 2011Q4

REPORT INFORMATION
  Report Type: 
  Country: None (occurrence: None)
  Receive Date: 20111202
  Receipt Date: 20111121
  Transmission Date: 20120403
  Serious: Yes (Hospitalization, Disabling, Other)
  Sender: FDA-Public Use
  Company Number: 2011MA016689

PATIENT
  Age: 57 Year
  Sex: Male

DRUGS (10)
  1. PRAMIPEXOLE DIHYDROCHLORIDE [Concomitant]
  2. BIPERIDEN HYDROCHLORIDE TAB [Concomitant]
  3. ENTACAPONE [Suspect]
     Indication: PRODUCT USED FOR UNKNOWN INDICATION
     Dosage: 200 MG;QID;
  4. CLOZAPINE [Suspect]
     Indication: PRODUCT USED FOR UNKNOWN INDICATION
     Dosage: 75 MG;QID;
  5. BENZERAZIDE (NO PREF. NAME) [Suspect]
     Indication: PRODUCT USED FOR UNKNOWN INDICATION
     Dosage: 25 MG;HS;
  6. CITALOPRAM HYDROBROMIDE [Suspect]
     Indication: PRODUCT USED FOR UNKNOWN INDICATION
     Dosage: 30 MG;QID;
  7. AMANTADINE HCL [Concomitant]
  8. AMITRIPTYLINE HCL [Concomitant]
  9. CLONAZEPAM [Concomitant]
  10. CARBIDOPA AND LEVODOPA [Suspect]
     Indication: PARKINSON'S DISEASE
     Dosage: 3300 MG; ;PO
     Route: 048

REACTIONS (22)
  - OBSESSIVE-COMPULSIVE DISORDER [None]
  - RESTLESSNESS [None]
  - MUSCLE RIGIDITY [None]
  - BRADYKINESIA [None]
  - TREMOR [None]
  - DRUG DEPENDENCE [None]
  - ABNORMAL BEHAVIOUR [None]
  - HYPERSEXUALITY [None]
  - AGGRESSION [None]
  - DOPAMINE DYSREGULATION SYNDROME [None]
  - DYSPHONIA [None]
  - INCORRECT DOSE ADMINISTERED [None]
  - ANXIETY [None]
  - AGITATION [None]
  - DEPRESSIVE SYMPTOM [None]
  - GAIT DISTURBANCE [None]
  - DYSKINESIA [None]
  - IMPAIRED DRIVING ABILITY [None]
  - ON AND OFF PHENOMENON [None]
  - DYSARTHRIA [None]
  - PSYCHOMOTOR HYPERACTIVITY [None]
  - HYPERHIDROSIS [None]
